FAERS Safety Report 8591379-8 (Version None)
Quarter: 2012Q3

REPORT INFORMATION
  Report Type: 
  Country: None (occurrence: None)
  Receive Date: 20120803
  Receipt Date: 20120803
  Transmission Date: 20120928
  Serious: No
  Sender: FDA-Public Use
  Company Number: None

PATIENT
  Age: 37 Year
  Sex: Female

DRUGS (1)
  1. NEUTROGENA CLEAR FACE LIQUID LOTION SUN BLOCK SPF 30 [Suspect]
     Indication: PROPHYLAXIS AGAINST SOLAR RADIATION
     Dates: start: 20120612

REACTIONS (2)
  - DERMATITIS CONTACT [None]
  - CHEMICAL INJURY [None]
